FAERS Safety Report 6390234-1 (Version None)
Quarter: 2009Q4

REPORT INFORMATION
  Report Type: 
  Country: None (occurrence: None)
  Receive Date: 20091006
  Receipt Date: 20090929
  Transmission Date: 20100525
  Serious: Yes (Hospitalization)
  Sender: FDA-Public Use
  Company Number: B0582996A

PATIENT
  Sex: Male
  Weight: 15 kg

DRUGS (6)
  1. CLAVAMOX [Suspect]
     Indication: WOUND
     Route: 048
     Dates: start: 20090608, end: 20090620
  2. GENTAMICIN [Concomitant]
     Route: 061
     Dates: start: 20090608
  3. GARASONE [Concomitant]
     Route: 061
     Dates: start: 20090610
  4. ZADITEN [Concomitant]
     Route: 048
     Dates: start: 20090620
  5. BANAN [Concomitant]
     Route: 048
     Dates: start: 20090620
  6. KLARICID [Concomitant]
     Route: 048
     Dates: start: 20090622

REACTIONS (16)
  - ACUTE GENERALISED EXANTHEMATOUS PUSTULOSIS [None]
  - BLISTER [None]
  - BLOOD CREATININE DECREASED [None]
  - C-REACTIVE PROTEIN INCREASED [None]
  - CYST [None]
  - DECREASED APPETITE [None]
  - ERYTHEMA [None]
  - EYELID OEDEMA [None]
  - HAEMOGLOBIN DECREASED [None]
  - MUCOUS MEMBRANE DISORDER [None]
  - OEDEMA [None]
  - ORAL MUCOSAL ERYTHEMA [None]
  - PYREXIA [None]
  - SKIN EROSION [None]
  - SKIN EXFOLIATION [None]
  - VEIN DISCOLOURATION [None]
